FAERS Safety Report 8846293 (Version 2)
Quarter: 2012Q4

REPORT INFORMATION
  Report Type: 
  Country: US (occurrence: US)
  Receive Date: 20121018
  Receipt Date: 20121101
  Transmission Date: 20130627
  Serious: Yes (Life-Threatening, Other)
  Sender: FDA-Public Use
  Company Number: US-009507513-1210USA006743

PATIENT
  Age: 73 Year
  Sex: Male

DRUGS (5)
  1. EPTIFIBATIDE [Suspect]
     Dosage: 17 mg, UNK
     Route: 040
  2. EPTIFIBATIDE [Suspect]
     Dosage: 2 mg/kg/min continuous infusion
     Route: 041
  3. ASPIRIN [Suspect]
     Dosage: 325 mg, UNK
     Route: 048
  4. CLOPIDOGREL [Suspect]
     Dosage: 600 mg, UNK
     Route: 048
  5. UNFRACTIONATED HEPARIN [Suspect]
     Dosage: 5000 IU, UNK
     Route: 041

REACTIONS (3)
  - Thrombosis [Recovered/Resolved]
  - Disseminated intravascular coagulation [Recovered/Resolved]
  - Thrombocytopenia [Recovered/Resolved]
